FAERS Safety Report 10913939 (Version 1)
Quarter: 2015Q1

REPORT INFORMATION
  Report Type: Spontaneous
  Country: RU (occurrence: RU)
  Receive Date: 20150313
  Receipt Date: 20150313
  Transmission Date: 20150721
  Serious: Yes (Other)
  Sender: FDA-Public Use
  Company Number: RU-BRISTOL-MYERS SQUIBB COMPANY-BMS-2015-013274

PATIENT
  Age: 14 Year
  Sex: Female

DRUGS (1)
  1. ORENCIA [Suspect]
     Active Substance: ABATACEPT
     Indication: JUVENILE IDIOPATHIC ARTHRITIS
     Dosage: 500 MG, QMO
     Route: 065
     Dates: start: 20060605, end: 20140205

REACTIONS (3)
  - Off label use [Unknown]
  - Red blood cell sedimentation rate increased [Unknown]
  - Uveitis [Unknown]
